FAERS Safety Report 13058640 (Version 1)
Quarter: 2016Q4

REPORT INFORMATION
  Report Type: Spontaneous
  Country: US (occurrence: US)
  Receive Date: 20161223
  Receipt Date: 20161223
  Transmission Date: 20170207
  Serious: Yes (Disabling, Other)
  Sender: FDA-Public Use
  Company Number: None

PATIENT
  Age: 52 Year
  Sex: Female
  Weight: 61.65 kg

DRUGS (1)
  1. KIRKLAND SIGNATURE ALLERCLEAR [Suspect]
     Active Substance: LORATADINE
     Indication: MULTIPLE ALLERGIES
     Route: 048
     Dates: start: 20160901, end: 20161212

REACTIONS (2)
  - Blood cholesterol increased [None]
  - Weight increased [None]

NARRATIVE: CASE EVENT DATE: 20160901
